FAERS Safety Report 5955285-7 (Version None)
Quarter: 2008Q4

REPORT INFORMATION
  Report Type: 
  Country: None (occurrence: None)
  Receive Date: 20081117
  Receipt Date: 20081110
  Transmission Date: 20090506
  Serious: Yes (Death, Other)
  Sender: FDA-Public Use
  Company Number: US-GENENTECH-271412

PATIENT
  Age: 81 Year
  Sex: Male

DRUGS (4)
  1. ACTIVASE [Suspect]
     Indication: CEREBRAL ARTERY OCCLUSION
     Dosage: 15 MG, UNK
     Route: 013
  2. HEPARIN [Concomitant]
     Indication: ANTICOAGULANT THERAPY
     Dosage: UNK
  3. CLOPIDOGREL [Concomitant]
     Indication: ANTIPLATELET THERAPY
     Dosage: 300 MG, UNK
  4. CLOPIDOGREL [Concomitant]
     Dosage: 75 MG, UNK

REACTIONS (2)
  - DEATH [None]
  - DRUG INEFFECTIVE [None]
